FAERS Safety Report 6976326-4 (Version None)
Quarter: 2010Q3

REPORT INFORMATION
  Report Type: 
  Country: None (occurrence: None)
  Receive Date: 20100910
  Receipt Date: 20100831
  Transmission Date: 20110219
  Serious: Yes (Other)
  Sender: FDA-Public Use
  Company Number: US-PFIZER INC-2010110462

PATIENT
  Sex: Female
  Weight: 55.782 kg

DRUGS (9)
  1. CELEBREX [Suspect]
     Indication: OSTEOARTHRITIS
     Dosage: 200 MG, 1X/DAY
     Route: 048
     Dates: start: 20050101, end: 20050101
  2. CELEBREX [Suspect]
     Dosage: 200 MG, 2X/DAY
     Dates: start: 20060101, end: 20060101
  3. VICODIN [Concomitant]
     Indication: OSTEOARTHRITIS
     Dosage: UNK
  4. PROVIGIL [Concomitant]
     Dosage: UNK
  5. DETROL LA [Concomitant]
     Dosage: UNK
  6. FOSAMAX [Concomitant]
     Dosage: UNK
  7. VITAMIN D [Concomitant]
     Dosage: UNK
  8. CALCIUM [Concomitant]
     Dosage: UNK
  9. UBIQUINON [Concomitant]
     Dosage: UNK

REACTIONS (3)
  - DRUG INEFFECTIVE [None]
  - LOW DENSITY LIPOPROTEIN INCREASED [None]
  - THYROID FUNCTION TEST ABNORMAL [None]
